FAERS Safety Report 17922380 (Version 4)
Quarter: 2020Q4

REPORT INFORMATION
  Report Type: Spontaneous
  Country: US (occurrence: US)
  Receive Date: 20200622
  Receipt Date: 20201111
  Transmission Date: 20210113
  Serious: No
  Sender: FDA-Public Use
  Company Number: US-PFIZER INC-2020238628

PATIENT
  Age: 66 Year
  Sex: Female
  Weight: 88.91 kg

DRUGS (2)
  1. ESTRING [Suspect]
     Active Substance: ESTRADIOL
     Indication: GENITAL PAIN
  2. ESTRING [Suspect]
     Active Substance: ESTRADIOL
     Indication: ABDOMINAL PAIN
     Dosage: 2 MG (USUALLY REPLACED IT EVERY 4 MONTHS)
     Route: 067

REACTIONS (5)
  - Pollakiuria [Unknown]
  - Malaise [Unknown]
  - Drug ineffective for unapproved indication [Unknown]
  - Device use issue [Unknown]
  - Off label use [Unknown]
